FAERS Safety Report 20486851 (Version 1)
Quarter: 2022Q1

REPORT INFORMATION
  Report Type: Spontaneous
  Country: US (occurrence: US)
  Receive Date: 20220217
  Receipt Date: 20220217
  Transmission Date: 20220423
  Serious: Yes (Hospitalization)
  Sender: FDA-Public Use
  Company Number: US-SA-SAC20220216000687

PATIENT
  Sex: Female

DRUGS (19)
  1. DUPIXENT [Suspect]
     Active Substance: DUPILUMAB
     Indication: Asthma
     Dosage: 300 MG, QOW
     Route: 058
     Dates: start: 20210515
  2. AIMOVIG [Concomitant]
     Active Substance: ERENUMAB-AOOE
  3. ALBUTEROL SULFATE [Concomitant]
     Active Substance: ALBUTEROL SULFATE
  4. CODEINE [Concomitant]
     Active Substance: CODEINE
     Dosage: APAP/CODEINE TAB 300-30MG
  5. EPIPEN [Concomitant]
     Active Substance: EPINEPHRINE
     Dosage: 0.3 MG
  6. FLOVENT [Concomitant]
     Active Substance: FLUTICASONE PROPIONATE
     Dosage: 250 UG
  7. FLUTICASONE [Concomitant]
     Active Substance: FLUTICASONE
     Dosage: 50 UG
  8. KETOROLAC [Concomitant]
     Active Substance: KETOROLAC TROMETHAMINE
  9. LEVALBUTEROL [Concomitant]
     Active Substance: LEVALBUTEROL
     Dosage: 1.25 MG
  10. LYRICA [Concomitant]
     Active Substance: PREGABALIN
     Dosage: 75 MG
  11. OMEPRAZOLE [Concomitant]
     Active Substance: OMEPRAZOLE
     Dosage: 40 MG
  12. PREDNISONE [Concomitant]
     Active Substance: PREDNISONE
     Dosage: 20 MG
  13. ROPINIROLE [Concomitant]
     Active Substance: ROPINIROLE
     Dosage: 0.25 MG
  14. SPIRIVA [Concomitant]
     Active Substance: TIOTROPIUM BROMIDE MONOHYDRATE
     Dosage: 2.5 UG
  15. SYMBICORT [Concomitant]
     Active Substance: BUDESONIDE\FORMOTEROL FUMARATE DIHYDRATE
     Dosage: SYMBICORT AER 160-4.5
  16. BUPRENORPHINE [Concomitant]
     Active Substance: BUPRENORPHINE
     Dosage: BUPRENORPHIN DIS 5MCG/HR
  17. CYCLOBENZAPRINE [Concomitant]
     Active Substance: CYCLOBENZAPRINE
     Dosage: 10 MG
  18. METOPROLOL SUCCINATE [Concomitant]
     Active Substance: METOPROLOL SUCCINATE
     Dosage: METOPROL SUC TAB 25MG ER
  19. SPIRIVA [Concomitant]
     Active Substance: TIOTROPIUM BROMIDE MONOHYDRATE

REACTIONS (4)
  - Hospitalisation [Unknown]
  - Nausea [Not Recovered/Not Resolved]
  - Asthma [Unknown]
  - Impaired quality of life [Unknown]

NARRATIVE: CASE EVENT DATE: 20220101
